FAERS Safety Report 16541831 (Version 1)
Quarter: 2019Q3

REPORT INFORMATION
  Report Type: Report from Study
  Country: US (occurrence: US)
  Receive Date: 20190708
  Receipt Date: 20190708
  Transmission Date: 20191004
  Serious: Yes (Hospitalization)
  Sender: FDA-Public Use
  Company Number: US-TEVA-2019-US-1073034

PATIENT
  Age: 2 Year
  Sex: Male
  Weight: 14.5 kg

DRUGS (11)
  1. METHOTREXATE. [Suspect]
     Active Substance: METHOTREXATE
     Indication: ACUTE LYMPHOCYTIC LEUKAEMIA
     Dosage: SINGLE
     Route: 037
     Dates: start: 20190228, end: 20190228
  2. ONDANSETRON [Concomitant]
     Active Substance: ONDANSETRON
     Dates: start: 20180726
  3. CYCLOPHOSPHAMIDE. [Suspect]
     Active Substance: CYCLOPHOSPHAMIDE
     Indication: ACUTE LYMPHOCYTIC LEUKAEMIA
     Dosage: FREQUENCY: ONCE
     Route: 042
     Dates: start: 20190228
  4. METHOTREXATE. [Suspect]
     Active Substance: METHOTREXATE
     Dosage: SINGLE
     Route: 037
     Dates: start: 20190308
  5. CYTARABINE. [Suspect]
     Active Substance: CYTARABINE
     Dosage: 39 MILLIGRAM DAILY;
     Route: 042
     Dates: start: 20190228, end: 20190303
  6. VINCRISTINE [Suspect]
     Active Substance: VINCRISTINE
     Indication: ACUTE LYMPHOCYTIC LEUKAEMIA
     Dosage: ONCE
     Route: 042
     Dates: start: 20190314
  7. PEGASPARGASE [Suspect]
     Active Substance: PEGASPARGASE
     Indication: ACUTE LYMPHOCYTIC LEUKAEMIA
     Dosage: SINGLE
     Route: 042
     Dates: start: 20190314
  8. CYTARABINE. [Suspect]
     Active Substance: CYTARABINE
     Dosage: 39 MILLIGRAM DAILY;
     Route: 042
     Dates: start: 20190307
  9. PERIACTIN [Concomitant]
     Active Substance: CYPROHEPTADINE HYDROCHLORIDE
     Dates: start: 20190315, end: 20190315
  10. THIOGUANINE [Suspect]
     Active Substance: THIOGUANINE
     Indication: ACUTE LYMPHOCYTIC LEUKAEMIA
     Route: 048
     Dates: start: 20190228
  11. BACTRIM [Concomitant]
     Active Substance: SULFAMETHOXAZOLE\TRIMETHOPRIM
     Dates: start: 20180728

REACTIONS (4)
  - Venoocclusive liver disease [Recovered/Resolved]
  - Alanine aminotransferase increased [Recovered/Resolved]
  - Platelet count decreased [Recovered/Resolved]
  - Serum ferritin increased [Recovered/Resolved]

NARRATIVE: CASE EVENT DATE: 20190314
